FAERS Safety Report 15058545 (Version 2)
Quarter: 2018Q2

REPORT INFORMATION
  Report Type: Spontaneous
  Country: DE (occurrence: DE)
  Receive Date: 20180625
  Receipt Date: 20180625
  Transmission Date: 20180711
  Serious: Yes (Hospitalization, Other)
  Sender: FDA-Public Use
  Company Number: PHHY2018DE020506

PATIENT
  Sex: Male

DRUGS (32)
  1. PEGFILGRASTIM [Suspect]
     Active Substance: PEGFILGRASTIM
     Dosage: 6 MG, QD
     Route: 058
     Dates: start: 20150712
  2. CALCIUM FOLINATE [Suspect]
     Active Substance: LEUCOVORIN CALCIUM
     Dosage: 5 MG, QD (FOR 2 WEEKS)
     Route: 048
     Dates: start: 20150620
  3. FOLIC ACID. [Concomitant]
     Active Substance: FOLIC ACID
     Dosage: 10 MG, UNK
     Route: 048
     Dates: start: 201505
  4. RITUXIMAB. [Suspect]
     Active Substance: RITUXIMAB
     Indication: B-CELL LYMPHOMA
     Dosage: UNK (MOST RECENT CYCLE: 3; MOST RECENT DOSE PRIOR TO SAE: 17/JUN/2015 (L IN 1 D))
     Route: 042
  5. VINCRISTINE [Suspect]
     Active Substance: VINCRISTINE
     Dosage: 1 DF, QD (LAST DOSE PRIOR TO SAE: 10/JUL/2015, LAST DOSE PRIOR TO SAE: 13/JUL/2015 (1 IN 1D))
     Route: 042
     Dates: start: 20150710
  6. CYCLOPHOSPHAMIDE. [Suspect]
     Active Substance: CYCLOPHOSPHAMIDE
     Indication: B-CELL LYMPHOMA
     Dosage: MOST RECENT DOSE PRIOR TO SAE: 18/JUN/2015 (1 IN 1 D)
     Route: 042
  7. METAMIZOL NATRIUM [Concomitant]
     Indication: PAIN
     Dosage: 1 G, PRN (1 G, AS NECESSARY, FOR 2 DAYS)
     Route: 042
     Dates: start: 20150623
  8. SULFAMETHOXAZOLE AND TRIMETHOPRIM [Concomitant]
     Active Substance: SULFAMETHOXAZOLE\TRIMETHOPRIM
     Dosage: 192 MG, QW (96 MG, 2 TIMES/WK)
     Route: 048
     Dates: start: 201505
  9. TAMSULOSIN [Concomitant]
     Active Substance: TAMSULOSIN
     Indication: BENIGN PROSTATIC HYPERPLASIA
     Dosage: 4 MG, QD
     Route: 048
  10. AMLODIPINE [Concomitant]
     Active Substance: AMLODIPINE BESYLATE
     Indication: AORTIC VALVE INCOMPETENCE
     Dosage: 5 MG, QD
     Route: 048
  11. PEGFILGRASTIM [Suspect]
     Active Substance: PEGFILGRASTIM
     Indication: B-CELL LYMPHOMA
     Dosage: 6 MG, QD
     Route: 058
     Dates: start: 20150621
  12. DOXORUBICIN [Suspect]
     Active Substance: DOXORUBICIN
     Indication: B-CELL LYMPHOMA
     Dosage: 1 OT, QD (LAST DOSE PRIOR TO SAE: 18/JUN/2015 (1 IN 1 D))
     Route: 042
     Dates: start: 20150618
  13. PREDNISOLON [Suspect]
     Active Substance: PREDNISOLONE
     Dosage: 1 DF, UNK (FOR 6 DAYS MOST RECENT DOSE PRIOR TO SAE: 18/JUN/2015 (1 IN 1 D))
     Route: 048
     Dates: start: 20150622
  14. CYCLOPHOSPHAMIDE. [Suspect]
     Active Substance: CYCLOPHOSPHAMIDE
     Dosage: 1 DF, UNK
     Route: 042
     Dates: start: 20150618, end: 20150618
  15. PEGFILGRASTIM [Suspect]
     Active Substance: PEGFILGRASTIM
     Dosage: 6 MG, QD
     Route: 058
     Dates: start: 20150711, end: 20150711
  16. BISACODYL. [Concomitant]
     Active Substance: BISACODYL
     Indication: CONSTIPATION
     Dosage: 20 GTT, QD
     Route: 048
     Dates: start: 20150701, end: 20150702
  17. FOLIC ACID. [Concomitant]
     Active Substance: FOLIC ACID
     Indication: PROPHYLAXIS
     Dosage: 5 MG, Q2W
     Route: 048
     Dates: start: 201505
  18. RITUXIMAB. [Suspect]
     Active Substance: RITUXIMAB
     Dosage: UNK (LAST DOSE PRIOR TO SAE- 15/SEP/2015 (1 IN 1 D))
     Route: 042
  19. PREDNISOLON [Suspect]
     Active Substance: PREDNISOLONE
     Dosage: MOST RECENT DOSE PRIOR TO SAE: 10/JUL/2015, LAST DOSE PRIOR TO SAE: 13/JUL/2015
     Route: 048
     Dates: start: 20150709, end: 20150713
  20. RAMIPRIL. [Concomitant]
     Active Substance: RAMIPRIL
     Indication: HYPERTENSION
     Dosage: 10 MG, QD (5 MG, BID)
     Route: 048
  21. METAMIZOL NATRIUM [Concomitant]
     Dosage: 1 G, PRN (1 G, AS NECESSARY, FOR 2 DAYS)
     Route: 042
     Dates: start: 20150624
  22. DOXORUBICIN [Suspect]
     Active Substance: DOXORUBICIN
     Dosage: 1 OT, QD (LAST DOSE PRIOR TO SAE: 10/JUL/2015, LAST DOSE PRIOR TO SAET 13/JUL/2015 (1 IN 1 D))
     Route: 042
     Dates: start: 20150710
  23. CALCIUM FOLINATE [Suspect]
     Active Substance: LEUCOVORIN CALCIUM
     Indication: B-CELL LYMPHOMA
     Dosage: 5 MG, QD (FOR 2 WEEKS)
     Route: 048
     Dates: start: 201505
  24. CYCLOPHOSPHAMIDE. [Suspect]
     Active Substance: CYCLOPHOSPHAMIDE
     Dosage: 1 OT, QD (LAST DOSE PRIOR TO SAE: 10/JUL/2015, LAST DOSE PRIOR TO SAE: 13/JUL/2015 (1 IN 1 D))
     Route: 042
     Dates: start: 20150710
  25. COLECALCIFEROL [Concomitant]
     Active Substance: CHOLECALCIFEROL
     Indication: VITAMIN D DEFICIENCY
     Dosage: 20000 IU, QWK
     Route: 048
     Dates: start: 201505
  26. POLYETHYLENE GLYCOL [Concomitant]
     Active Substance: POLYETHYLENE GLYCOLS
     Indication: CONSTIPATION
     Dosage: 1 BAG 1-0-0 FOR 3 DAYS
     Route: 048
     Dates: start: 20150701
  27. RITUXIMAB. [Suspect]
     Active Substance: RITUXIMAB
     Dosage: 776 MG, UNK (MOST RECENT CYCLE NUMBER 4; MOST RECENT DOSE PRIOR TO SAE: 09/JUL/2015)
     Route: 042
     Dates: start: 20150709
  28. VINCRISTINE [Suspect]
     Active Substance: VINCRISTINE
     Indication: PRODUCT USED FOR UNKNOWN INDICATION
     Dosage: 1 DF, QD (LAST DOSE PRIOR TO SAE: 18/JUN/2015 (1 IN 1 D))
     Route: 042
     Dates: start: 20150618
  29. PREDNISOLON [Suspect]
     Active Substance: PREDNISOLONE
     Indication: B-CELL LYMPHOMA
     Dosage: 1 DF, UNK (FOR 6 DAYS MOST RECENT DOSE PRIOR TO SAE: 18/JUN/2015 (1 IN 1 D))
     Route: 048
     Dates: start: 20150617
  30. METAMIZOL NATRIUM [Concomitant]
     Indication: PYREXIA
     Dosage: UNK
     Route: 065
  31. SULFAMETHOXAZOLE AND TRIMETHOPRIM [Concomitant]
     Active Substance: SULFAMETHOXAZOLE\TRIMETHOPRIM
     Indication: PROPHYLAXIS
     Dosage: 1920 MG, QW (960 MG, 2 TIMES/WK)
     Route: 048
     Dates: start: 201505
  32. POLYETHYLENE GLYCOL [Concomitant]
     Active Substance: POLYETHYLENE GLYCOLS
     Dosage: 1 BAG 1-0-0 FOR 3 DAYS
     Route: 048
     Dates: start: 20150703, end: 20150703

REACTIONS (4)
  - Urinary tract infection [Unknown]
  - Urinary tract infection [Recovered/Resolved]
  - Sepsis [Recovered/Resolved]
  - Urinary tract infection [Recovered/Resolved]

NARRATIVE: CASE EVENT DATE: 20150623
